FAERS Safety Report 22192195 (Version 1)
Quarter: 2023Q2

REPORT INFORMATION
  Report Type: Spontaneous
  Country: US (occurrence: None)
  Receive Date: 20230409
  Receipt Date: 20230409
  Transmission Date: 20230722
  Serious: Yes (Other)
  Sender: FDA-Public Use
  Company Number: None

PATIENT
  Age: 9 Year
  Sex: Male
  Weight: 27.9 kg

DRUGS (1)
  1. MONTELUKAST [Suspect]
     Active Substance: MONTELUKAST SODIUM
     Indication: Multiple allergies
     Dates: start: 20191213, end: 20230113

REACTIONS (10)
  - Tic [None]
  - Aggression [None]
  - Psychomotor hyperactivity [None]
  - Disturbance in attention [None]
  - Pain [None]
  - Affect lability [None]
  - Anger [None]
  - Restlessness [None]
  - Decreased interest [None]
  - Reaction to azo-dyes [None]

NARRATIVE: CASE EVENT DATE: 20230117
